FAERS Safety Report 23963311 (Version 1)
Quarter: 2024Q2

REPORT INFORMATION
  Report Type: Spontaneous
  Country: US (occurrence: US)
  Receive Date: 20240611
  Receipt Date: 20240611
  Transmission Date: 20240715
  Serious: No
  Sender: FDA-Public Use
  Company Number: US--RIGEL Pharmaceuticals, INC-2023FOS001350

PATIENT
  Sex: Male

DRUGS (1)
  1. TAVALISSE [Suspect]
     Active Substance: FOSTAMATINIB
     Indication: Monoclonal gammopathy
     Dosage: 150 MG, BID
     Route: 048

REACTIONS (1)
  - Off label use [Unknown]
